FAERS Safety Report 15556787 (Version 1)
Quarter: 2018Q4

REPORT INFORMATION
  Report Type: Spontaneous
  Country: US (occurrence: US)
  Receive Date: 20181026
  Receipt Date: 20181026
  Transmission Date: 20190205
  Serious: No
  Sender: FDA-Public Use
  Company Number: US-STALLERGENES SAS-2058126

PATIENT
  Age: 56 Year
  Sex: Female

DRUGS (9)
  1. FLEXERIL [Concomitant]
     Active Substance: CYCLOBENZAPRINE HYDROCHLORIDE
  2. VITAMIN C [Concomitant]
     Active Substance: ASCORBIC ACID
  3. PROVENTIL [Concomitant]
     Active Substance: ALBUTEROL
  4. VITAMIN A [Concomitant]
     Active Substance: VITAMIN A
  5. KRILL OIL [Concomitant]
     Active Substance: DIETARY SUPPLEMENT
  6. RANITIDINE. [Concomitant]
     Active Substance: RANITIDINE
  7. TRAMADOL. [Concomitant]
     Active Substance: TRAMADOL
  8. ORALAIR [Suspect]
     Active Substance: ANTHOXANTHUM ODORATUM POLLEN\DACTYLIS GLOMERATA POLLEN\LOLIUM PERENNE POLLEN\PHLEUM PRATENSE POLLEN\POA PRATENSIS POLLEN
     Indication: HYPERSENSITIVITY
     Route: 060
     Dates: start: 20170728, end: 20180810
  9. ERGOCALCIFEROL. [Concomitant]
     Active Substance: ERGOCALCIFEROL

REACTIONS (4)
  - Dizziness [Unknown]
  - Headache [Unknown]
  - Glossodynia [Recovering/Resolving]
  - Gastrointestinal disorder [Unknown]

NARRATIVE: CASE EVENT DATE: 20180517
